FAERS Safety Report 6959512-9 (Version None)
Quarter: 2010Q3

REPORT INFORMATION
  Report Type: 
  Country: None (occurrence: None)
  Receive Date: 20100827
  Receipt Date: 20100811
  Transmission Date: 20110219
  Serious: Yes (Life-Threatening, Hospitalization, Other)
  Sender: FDA-Public Use
  Company Number: 20100385

PATIENT
  Age: 55 Year
  Sex: Male

DRUGS (3)
  1. FOSPHENYTOIN SODIUM [Suspect]
     Indication: CONVULSION PROPHYLAXIS
     Dosage: 1 G LOADING DOSE INTRAVENOUS DRIP
     Route: 041
  2. PHENYTOIN SODIUM [Suspect]
     Indication: CONVULSION PROPHYLAXIS
     Dosage: 100 MG THREE TIMES DAILY INTRAVENOUS
     Route: 042
  3. ESOMEPRAZOLE MAGNESIUM [Suspect]
     Dosage: 40 MG TWICE DAILY FOR TWO DAYS INTRAVENOUS
     Route: 042

REACTIONS (7)
  - BASAL GANGLIA HAEMORRHAGE [None]
  - CEREBRAL HAEMORRHAGE [None]
  - HEPATIC ISCHAEMIA [None]
  - HYPOTENSION [None]
  - PNEUMONIA [None]
  - RENAL FAILURE ACUTE [None]
  - THROMBOCYTOPENIA [None]
